FAERS Safety Report 14783250 (Version 1)
Quarter: 2018Q2

REPORT INFORMATION
  Report Type: Report from Study
  Country: None (occurrence: DE)
  Receive Date: 20180420
  Receipt Date: 20180420
  Transmission Date: 20180711
  Serious: Yes (Hospitalization, Other)
  Sender: FDA-Public Use
  Company Number: DE-ABBVIE-18K-062-2325517-00

PATIENT
  Age: 66 Year
  Sex: Male

DRUGS (1)
  1. HUMIRA [Suspect]
     Active Substance: ADALIMUMAB
     Indication: PSORIASIS
     Route: 058
     Dates: start: 20160811, end: 20170528

REACTIONS (11)
  - Sinusitis [Unknown]
  - Bronchial carcinoma [Unknown]
  - Hyperparathyroidism secondary [Unknown]
  - Lymphadenopathy [Not Recovered/Not Resolved]
  - Arteriosclerosis coronary artery [Unknown]
  - Spinal osteoarthritis [Unknown]
  - Pneumonitis [Unknown]
  - Pulmonary tuberculosis [Not Recovered/Not Resolved]
  - Intervertebral disc protrusion [Unknown]
  - Proteinuria [Unknown]
  - Hypoaesthesia [Unknown]

NARRATIVE: CASE EVENT DATE: 20170213
